FAERS Safety Report 14779517 (Version 1)
Quarter: 2018Q2

REPORT INFORMATION
  Report Type: Spontaneous
  Country: DE (occurrence: DE)
  Receive Date: 20180419
  Receipt Date: 20180419
  Transmission Date: 20180711
  Serious: Yes (Hospitalization, Other)
  Sender: FDA-Public Use
  Company Number: DE-MYLANLABS-2018M1001831

PATIENT
  Age: 34 Year
  Sex: Male

DRUGS (7)
  1. ARIPIPRAZOLE. [Suspect]
     Active Substance: ARIPIPRAZOLE
     Dosage: 1 DF, UNK
     Route: 048
     Dates: start: 20161214, end: 20161221
  2. ARIPIPRAZOLE. [Suspect]
     Active Substance: ARIPIPRAZOLE
     Dosage: 20 MG, QD
     Route: 048
     Dates: start: 20161222
  3. QUETIAPINE. [Suspect]
     Active Substance: QUETIAPINE
     Indication: PRODUCT USED FOR UNKNOWN INDICATION
     Dosage: UPTO 400 MG
     Route: 048
     Dates: end: 20160909
  4. ARIPIPRAZOLE. [Suspect]
     Active Substance: ARIPIPRAZOLE
     Indication: PRODUCT USED FOR UNKNOWN INDICATION
     Dosage: 5-10 MG
     Route: 048
     Dates: start: 20161214
  5. QUETIAPINE. [Suspect]
     Active Substance: QUETIAPINE
     Dosage: 100-300 MG/TAG
     Route: 048
     Dates: start: 20161214
  6. ARIPIPRAZOLE. [Suspect]
     Active Substance: ARIPIPRAZOLE
     Dosage: 1 DF, UNK
     Dates: end: 20160909
  7. KALIUM DURULE [Concomitant]
     Indication: PRODUCT USED FOR UNKNOWN INDICATION
     Dosage: 1 BTL./TAG
     Route: 048

REACTIONS (2)
  - Seizure [Recovered/Resolved]
  - Treatment noncompliance [Unknown]

NARRATIVE: CASE EVENT DATE: 20161215
